FAERS Safety Report 9840540 (Version 2)
Quarter: 2014Q1

REPORT INFORMATION
  Report Type: Spontaneous
  Country: BR (occurrence: BR)
  Receive Date: 20140124
  Receipt Date: 20140218
  Transmission Date: 20141002
  Serious: Yes (Death, Hospitalization)
  Sender: FDA-Public Use
  Company Number: BR-ROCHE-1337576

PATIENT
  Age: 57 Year
  Sex: Female

DRUGS (5)
  1. ACTEMRA [Suspect]
     Indication: RHEUMATOID ARTHRITIS
     Dosage: 0.8 MG/KG
     Route: 042
     Dates: start: 20130816, end: 20131002
  2. METHOTREXATE [Concomitant]
     Indication: RHEUMATOID ARTHRITIS
  3. PREDNISONE [Concomitant]
     Indication: RHEUMATOID ARTHRITIS
     Route: 048
  4. PREDNISONE [Concomitant]
     Route: 048
  5. LEFLUNOMIDE [Concomitant]
     Indication: RHEUMATOID ARTHRITIS
     Route: 048
     Dates: start: 2010, end: 20131015

REACTIONS (6)
  - Multi-organ failure [Fatal]
  - Spinal disorder [Unknown]
  - Sepsis [Recovered/Resolved]
  - Back pain [Recovered/Resolved]
  - Postoperative wound infection [Recovered/Resolved]
  - Urinary tract infection [Recovered/Resolved]
